FAERS Safety Report 7722804-X (Version None)
Quarter: 2011Q3

REPORT INFORMATION
  Report Type: 
  Country: None (occurrence: None)
  Receive Date: 20110901
  Receipt Date: 20110825
  Transmission Date: 20111222
  Serious: Yes (Hospitalization)
  Sender: FDA-Public Use
  Company Number: US-BIOGENIDEC-2011BI030660

PATIENT
  Sex: Male

DRUGS (5)
  1. AVONEX [Suspect]
     Indication: MULTIPLE SCLEROSIS
     Route: 030
     Dates: start: 20000412, end: 20050101
  2. AMPYRA [Concomitant]
     Indication: GAIT DISTURBANCE
     Dates: start: 20050101
  3. AVONEX [Suspect]
     Route: 030
     Dates: start: 20050101
  4. AVONEX [Suspect]
     Route: 030
     Dates: start: 19990107, end: 19990101
  5. AVONEX [Suspect]
     Route: 030
     Dates: start: 20050101, end: 20050101

REACTIONS (12)
  - GASTROINTESTINAL DISORDER [None]
  - MULTIPLE SCLEROSIS RELAPSE [None]
  - DYSSTASIA [None]
  - INJECTION SITE PAIN [None]
  - URINARY TRACT INFECTION [None]
  - URINARY INCONTINENCE [None]
  - ENTERITIS INFECTIOUS [None]
  - HYPOTENSION [None]
  - GAIT DISTURBANCE [None]
  - SEPSIS [None]
  - URINARY RETENTION [None]
  - DYSGEUSIA [None]
